FAERS Safety Report 6330004-3 (Version None)
Quarter: 2009Q3

REPORT INFORMATION
  Report Type: 
  Country: None (occurrence: None)
  Receive Date: 20090826
  Receipt Date: 20090817
  Transmission Date: 20100115
  Serious: Yes (Hospitalization, Other)
  Sender: FDA-Public Use
  Company Number: JP-ABBOTT-09P-087-0568713-00

PATIENT
  Sex: Female
  Weight: 60 kg

DRUGS (12)
  1. HUMIRA [Suspect]
     Indication: RHEUMATOID ARTHRITIS
     Route: 058
     Dates: start: 20081217, end: 20090107
  2. HUMIRA [Suspect]
     Route: 058
     Dates: start: 20090128, end: 20090624
  3. METHOTREXATE [Suspect]
     Indication: RHEUMATOID ARTHRITIS
     Route: 048
  4. PREDNISOLONE [Suspect]
     Indication: RHEUMATOID ARTHRITIS
     Route: 048
     Dates: end: 20090106
  5. DICLOFENAC SODIUM [Concomitant]
     Indication: RHEUMATOID ARTHRITIS
     Route: 048
  6. FAMOTIDINE [Concomitant]
     Indication: GASTRITIS PROPHYLAXIS
     Route: 048
     Dates: end: 20090106
  7. SPIRONOLACTONE [Concomitant]
     Indication: DRUG USE FOR UNKNOWN INDICATION
     Route: 048
     Dates: end: 20090106
  8. MISOPROSTOL [Concomitant]
     Indication: GASTRITIS PROPHYLAXIS
     Dates: start: 20090107, end: 20090509
  9. CALCIUM L-ASPARTATE HYDRATE [Concomitant]
     Indication: OSTEOPOROSIS PROPHYLAXIS
     Dates: start: 20090107, end: 20090609
  10. ALENDRONATE SODIUM [Concomitant]
     Indication: OSTEOPOROSIS PROPHYLAXIS
     Dates: start: 20090107, end: 20090421
  11. KETOPROFEN [Concomitant]
     Indication: RHEUMATOID ARTHRITIS
     Dosage: 1 SHEET
     Dates: start: 20090107, end: 20090414
  12. FELBINAC [Concomitant]
     Indication: RHEUMATOID ARTHRITIS
     Dosage: 1 SHEET
     Dates: start: 20090107, end: 20090414

REACTIONS (7)
  - ABDOMINAL PAIN UPPER [None]
  - DIARRHOEA [None]
  - ILEITIS [None]
  - LOSS OF CONSCIOUSNESS [None]
  - LYMPHADENOPATHY [None]
  - PYREXIA [None]
  - THERAPEUTIC RESPONSE DECREASED [None]
